FAERS Safety Report 5490834-7 (Version None)
Quarter: 2007Q4

REPORT INFORMATION
  Report Type: 
  Country: None (occurrence: None)
  Receive Date: 20071019
  Receipt Date: 20071010
  Transmission Date: 20080405
  Serious: Yes (Hospitalization)
  Sender: FDA-Public Use
  Company Number: IT-WYE-G00453407

PATIENT
  Sex: Male
  Weight: 75 kg

DRUGS (3)
  1. TEMSIROLIMUS [Suspect]
     Indication: RENAL CANCER METASTATIC
     Route: 042
     Dates: start: 20070917, end: 20070925
  2. MAGALDRATE [Concomitant]
     Indication: GASTRIC DISORDER
     Route: 048
     Dates: start: 20070901
  3. DEXAMETHASONE 0.5MG TAB [Concomitant]
     Indication: METASTASES TO CENTRAL NERVOUS SYSTEM
     Route: 048
     Dates: start: 20070701

REACTIONS (2)
  - COLITIS EROSIVE [None]
  - ENTEROCOLITIS HAEMORRHAGIC [None]
